FAERS Safety Report 5685134-6 (Version None)
Quarter: 2008Q1

REPORT INFORMATION
  Report Type: 
  Country: None (occurrence: None)
  Receive Date: 20080328
  Receipt Date: 20080318
  Transmission Date: 20080703
  Serious: Yes (Death, Life-Threatening)
  Sender: FDA-Public Use
  Company Number: BE-PFIZER INC-2006099946

PATIENT
  Sex: Male
  Weight: 122 kg

DRUGS (17)
  1. SU-011,248 [Suspect]
     Indication: RENAL CELL CARCINOMA
     Route: 048
     Dates: start: 20051220, end: 20051223
  2. SU-011,248 [Suspect]
     Route: 048
     Dates: start: 20060124, end: 20060814
  3. AMOXICILLIN [Concomitant]
     Dates: start: 20060731, end: 20060809
  4. VALSARTAN [Concomitant]
  5. CARVEDILOL [Concomitant]
     Route: 048
     Dates: start: 19990101
  6. ALLOPURINOL [Concomitant]
     Route: 048
  7. ALPRAZOLAM [Concomitant]
  8. ESOMEPRAZOLE MAGNESIUM [Concomitant]
  9. DOMPERIDONE [Concomitant]
     Route: 048
  10. ENOXAPARIN SODIUM [Concomitant]
  11. BACLOFEN [Concomitant]
     Route: 048
  12. ESCITALOPRAM OXALATE [Concomitant]
  13. ACETAMINOPHEN [Concomitant]
  14. YEAST [Concomitant]
  15. MICONAZOLE NITRATE [Concomitant]
  16. ZINC [Concomitant]
  17. ENOXAPARIN SODIUM [Concomitant]
     Route: 058
     Dates: start: 20051224

REACTIONS (42)
  - ABSCESS [None]
  - ALANINE AMINOTRANSFERASE INCREASED [None]
  - ALVEOLITIS [None]
  - ASPARTATE AMINOTRANSFERASE INCREASED [None]
  - BLOOD CREATINE PHOSPHOKINASE MB INCREASED [None]
  - BLOOD CREATININE INCREASED [None]
  - BLOOD CULTURE POSITIVE [None]
  - BLOOD PHOSPHORUS INCREASED [None]
  - C-REACTIVE PROTEIN INCREASED [None]
  - CARDIAC FAILURE [None]
  - CHOLANGITIS [None]
  - DIALYSIS [None]
  - DUODENAL PERFORATION [None]
  - ECCHYMOSIS [None]
  - ENCEPHALOPATHY [None]
  - ENDOCARDITIS [None]
  - EROSIVE OESOPHAGITIS [None]
  - GASTRITIS EROSIVE [None]
  - HEPATIC FAILURE [None]
  - HEPATIC LESION [None]
  - HEPATIC NECROSIS [None]
  - HEPATIC STEATOSIS [None]
  - INTESTINAL ISCHAEMIA [None]
  - LIVER DISORDER [None]
  - LOBAR PNEUMONIA [None]
  - LUNG DISORDER [None]
  - METASTASES TO LUNG [None]
  - MUCOUS MEMBRANE DISORDER [None]
  - MYOCARDITIS [None]
  - MYOGLOBIN BLOOD INCREASED [None]
  - NEPHRITIS INTERSTITIAL [None]
  - PERICARDITIS [None]
  - PETECHIAE [None]
  - PLATELET COUNT DECREASED [None]
  - PNEUMONIA [None]
  - RENAL FAILURE [None]
  - RENAL TUBULAR NECROSIS [None]
  - SPINAL CORD COMPRESSION [None]
  - STAPHYLOCOCCAL INFECTION [None]
  - TROPONIN INCREASED [None]
  - URINARY BLADDER HAEMORRHAGE [None]
  - URINARY BLADDER POLYP [None]
